FAERS Safety Report 9498367 (Version 1)
Quarter: 2013Q3

REPORT INFORMATION
  Report Type: Spontaneous
  Country: US (occurrence: None)
  Receive Date: 20130903
  Receipt Date: 20130903
  Transmission Date: 20140515
  Serious: Yes (Life-Threatening, Hospitalization, Disabling, Other)
  Sender: FDA-Public Use
  Company Number: None

PATIENT
  Age: 58 Year
  Sex: Male
  Weight: 72.58 kg

DRUGS (5)
  1. OXYCONTIN [Suspect]
     Indication: SURGERY
     Route: 048
     Dates: start: 20121128
  2. MORPHINE [Concomitant]
  3. ZOLOFT [Concomitant]
  4. ZOLPIDEM [Concomitant]
  5. LISINOPRIL [Concomitant]

REACTIONS (2)
  - Withdrawal syndrome [None]
  - Drug ineffective [None]
